FAERS Safety Report 12005630 (Version 1)
Quarter: 2016Q1

REPORT INFORMATION
  Report Type: Report from Study
  Country: CA (occurrence: CA)
  Receive Date: 20160204
  Receipt Date: 20160204
  Transmission Date: 20160526
  Serious: Yes (Hospitalization, Other)
  Sender: FDA-Public Use
  Company Number: CA-AMGEN-CANSL2016012773

PATIENT
  Age: 40 Year
  Sex: Female

DRUGS (1)
  1. NEUPOGEN [Suspect]
     Active Substance: FILGRASTIM
     Indication: PRODUCT USED FOR UNKNOWN INDICATION
     Dosage: 1.6ML/480MCG, UNK
     Route: 065
     Dates: start: 20160123

REACTIONS (6)
  - Vomiting [Unknown]
  - Myalgia [Unknown]
  - Malaise [Unknown]
  - Dehydration [Unknown]
  - Nausea [Unknown]
  - White blood cell count abnormal [Unknown]
